FAERS Safety Report 13568626 (Version 2)
Quarter: 2017Q2

REPORT INFORMATION
  Report Type: Spontaneous
  Country: IE (occurrence: IE)
  Receive Date: 20170522
  Receipt Date: 20170526
  Transmission Date: 20170830
  Serious: Yes (Other)
  Sender: FDA-Public Use
  Company Number: IE-PFIZER INC-2017218693

PATIENT
  Age: 41 Year
  Sex: Female

DRUGS (2)
  1. GENOTROPIN [Suspect]
     Active Substance: SOMATROPIN
     Indication: GROWTH HORMONE DEFICIENCY
     Dosage: AT 0.3MG (ON AN ALTERNATE DOSING REGIMEN OF 0.2 MG AND 0.4 MG),
  2. GENOTROPIN [Suspect]
     Active Substance: SOMATROPIN
     Dosage: 0.4 UNK, UNK

REACTIONS (3)
  - Sinusitis [Unknown]
  - Anxiety [Unknown]
  - Peripheral coldness [Unknown]
